FAERS Safety Report 15004735 (Version 1)
Quarter: 2018Q2

REPORT INFORMATION
  Report Type: Spontaneous
  Country: US (occurrence: US)
  Receive Date: 20180613
  Receipt Date: 20180613
  Transmission Date: 20180711
  Serious: Yes (Death, Hospitalization, Other)
  Sender: FDA-Public Use
  Company Number: US-SA-2018SA154773

PATIENT
  Age: 42 Year
  Sex: Female

DRUGS (1)
  1. ALEMTUZUMAB [Suspect]
     Active Substance: ALEMTUZUMAB
     Dosage: UNK UNK, QD
     Route: 041

REACTIONS (6)
  - Chromaturia [Fatal]
  - Feeling abnormal [Fatal]
  - Myalgia [Fatal]
  - Arthralgia [Fatal]
  - Sepsis [Fatal]
  - Malaise [Fatal]
